FAERS Safety Report 8307689-5 (Version None)
Quarter: 2012Q2

REPORT INFORMATION
  Report Type: 
  Country: None (occurrence: None)
  Receive Date: 20120424
  Receipt Date: 20120424
  Transmission Date: 20120825
  Serious: Yes (Life-Threatening)
  Sender: FDA-Public Use
  Company Number: None

PATIENT
  Age: 64 Year
  Sex: Female
  Weight: 85.275 kg

DRUGS (1)
  1. REVLIMID [Suspect]
     Indication: SMALL CELL LUNG CANCER RECURRENT
     Dosage: 5 MG
     Route: 048
     Dates: start: 20120414, end: 20120420

REACTIONS (3)
  - CHEST PAIN [None]
  - DISCOMFORT [None]
  - DYSPNOEA [None]
